FAERS Safety Report 9686617 (Version 1)
Quarter: 2013Q4

REPORT INFORMATION
  Report Type: Spontaneous
  Country: US (occurrence: US)
  Receive Date: 20131113
  Receipt Date: 20131113
  Transmission Date: 20140711
  Serious: Yes (Other)
  Sender: FDA-Public Use
  Company Number: US-ELI_LILLY_AND_COMPANY-US201311000843

PATIENT
  Age: 75 Year
  Sex: Male

DRUGS (2)
  1. TERIPARATIDE [Suspect]
     Indication: OSTEOPOROSIS
     Dosage: UNK, QD
     Route: 065
     Dates: start: 201212
  2. TERIPARATIDE [Suspect]
     Indication: HIP FRACTURE

REACTIONS (1)
  - Creatinine renal clearance decreased [Unknown]
